FAERS Safety Report 5690435-1 (Version None)
Quarter: 2008Q2

REPORT INFORMATION
  Report Type: 
  Country: None (occurrence: None)
  Receive Date: 20080401
  Receipt Date: 20080320
  Transmission Date: 20081010
  Serious: Yes (Other)
  Sender: FDA-Public Use
  Company Number: US-AVENTIS-200811789US

PATIENT
  Sex: Female

DRUGS (3)
  1. KETEK [Suspect]
     Dosage: DOSE: UNK
     Dates: start: 20060201
  2. LORTAB [Concomitant]
     Dosage: DOSE: UNK
  3. MULTI-VITAMINS [Concomitant]
     Dosage: DOSE: UNK

REACTIONS (2)
  - ANOXIA [None]
  - VENTRICULAR TACHYCARDIA [None]
